FAERS Safety Report 9868956 (Version 4)
Quarter: 2015Q2

REPORT INFORMATION
  Report Type: Report from Study
  Country: US (occurrence: US)
  Receive Date: 20140205
  Receipt Date: 20150406
  Transmission Date: 20150821
  Serious: Yes (Hospitalization, Disabling)
  Sender: FDA-Public Use
  Company Number: US-ROCHE-1338703

PATIENT
  Age: 54 Year
  Sex: Female

DRUGS (6)
  1. ERIVEDGE [Suspect]
     Active Substance: VISMODEGIB
     Indication: BASAL CELL CARCINOMA
     Dosage: PATIENT WAS RECEIVING ^STANDARD DOSE^. ?STARTED OVER 2 YEARS AGO
     Route: 048
     Dates: end: 2014
  2. ERIVEDGE [Suspect]
     Active Substance: VISMODEGIB
     Route: 048
     Dates: start: 20131108
  3. OXCARBAZEPINE. [Concomitant]
     Active Substance: OXCARBAZEPINE
     Indication: NAUSEA
     Route: 065
  4. LISINOPRIL. [Concomitant]
     Active Substance: LISINOPRIL
     Indication: HYPERTENSION
     Route: 065
  5. LISINOPRIL. [Concomitant]
     Active Substance: LISINOPRIL
     Route: 065
  6. ONDANSETRON [Concomitant]
     Active Substance: ONDANSETRON
     Indication: NAUSEA
     Dosage: 30 MINUTES BEFORE ERIVEDGE
     Route: 065

REACTIONS (19)
  - Dehydration [Unknown]
  - Walking aid user [Not Recovered/Not Resolved]
  - Neuropathy peripheral [Not Recovered/Not Resolved]
  - Madarosis [Unknown]
  - Decreased appetite [Unknown]
  - Vomiting [Unknown]
  - Sensory loss [Not Recovered/Not Resolved]
  - Onychomadesis [Recovering/Resolving]
  - Alopecia [Unknown]
  - Asthenia [Unknown]
  - Ill-defined disorder [Unknown]
  - Fatigue [Unknown]
  - Ageusia [Unknown]
  - Headache [Unknown]
  - Hand deformity [Unknown]
  - Blood pressure increased [Unknown]
  - Neoplasm malignant [Unknown]
  - Muscle spasms [Unknown]
  - Poor dental condition [Unknown]

NARRATIVE: CASE EVENT DATE: 201312
